FAERS Safety Report 5896962-6 (Version None)
Quarter: 2008Q3

REPORT INFORMATION
  Report Type: 
  Country: None (occurrence: None)
  Receive Date: 20080924
  Receipt Date: 20080205
  Transmission Date: 20090109
  Serious: Yes (Other)
  Sender: FDA-Public Use
  Company Number: US-ASTRAZENECA-2008UW02480

PATIENT
  Age: 48 Year
  Sex: Female
  Weight: 117.9 kg

DRUGS (13)
  1. SEROQUEL XR [Suspect]
     Route: 048
     Dates: start: 20070601
  2. CRESTOR [Suspect]
     Route: 048
     Dates: end: 20071201
  3. CRESTOR [Suspect]
     Route: 048
     Dates: start: 20071201
  4. LISINOPRIL [Concomitant]
     Route: 048
  5. TOPROL-XL [Concomitant]
     Route: 048
  6. PLAVIX [Concomitant]
  7. NOVOLOG [Concomitant]
  8. LANTUS [Concomitant]
  9. ZOCOR [Concomitant]
  10. ASPIRIN [Concomitant]
  11. VALIUM [Concomitant]
  12. ALBUTEROL [Concomitant]
  13. ADVAIR DISKUS 100/50 [Concomitant]

REACTIONS (9)
  - BLOOD GLUCOSE INCREASED [None]
  - EMOTIONAL DISORDER [None]
  - FOREIGN BODY TRAUMA [None]
  - INSOMNIA [None]
  - MUSCLE SPASMS [None]
  - MUSCULAR WEAKNESS [None]
  - NEGATIVE THOUGHTS [None]
  - PAIN [None]
  - SUICIDAL IDEATION [None]
